FAERS Safety Report 20891600 (Version 3)
Quarter: 2022Q3

REPORT INFORMATION
  Report Type: Spontaneous
  Country: US (occurrence: None)
  Receive Date: 20220530
  Receipt Date: 20220727
  Transmission Date: 20221026
  Serious: Yes (Other)
  Sender: FDA-Public Use
  Company Number: 2022A196007

PATIENT
  Sex: Female

DRUGS (4)
  1. IMFINZI [Suspect]
     Active Substance: DURVALUMAB
     Indication: Non-small cell lung cancer stage III
     Dosage: ONCE/SINGLE ADMINISTRATION
     Route: 042
     Dates: start: 20220422
  2. PREDNISONE [Concomitant]
     Active Substance: PREDNISONE
     Dosage: 80.0MG UNKNOWN
  3. PREDNISONE [Concomitant]
     Active Substance: PREDNISONE
     Dosage: EVERY 5 DAYS10.0MG UNKNOWN
  4. PREDNISONE [Concomitant]
     Active Substance: PREDNISONE
     Dosage: 50.0MG UNKNOWN

REACTIONS (17)
  - Blood glucose increased [Unknown]
  - Pneumonitis [Unknown]
  - Pulmonary oedema [Unknown]
  - Anorectal discomfort [Not Recovered/Not Resolved]
  - Oxygen saturation decreased [Unknown]
  - Dyspnoea [Unknown]
  - Rectal fissure [Unknown]
  - Anal incontinence [Unknown]
  - Diplopia [Unknown]
  - Paraesthesia [Unknown]
  - Vision blurred [Unknown]
  - Neuropathy peripheral [Unknown]
  - Nervous system disorder [Unknown]
  - Anxiety [Not Recovered/Not Resolved]
  - Insomnia [Not Recovered/Not Resolved]
  - Joint swelling [Unknown]
  - Depression [Not Recovered/Not Resolved]
